FAERS Safety Report 8304918-9 (Version None)
Quarter: 2012Q2

REPORT INFORMATION
  Report Type: 
  Country: None (occurrence: None)
  Receive Date: 20120411
  Receipt Date: 20120404
  Transmission Date: 20120825
  Serious: Yes (Other)
  Sender: FDA-Public Use
  Company Number: 2011029503

PATIENT
  Sex: Female
  Weight: 50.8029 kg

DRUGS (7)
  1. CLONAZEPAM [Concomitant]
  2. HIZENTRA [Suspect]
     Indication: IMMUNODEFICIENCY COMMON VARIABLE
     Dosage: SEE IMAGE
     Route: 058
     Dates: start: 20110804
  3. HIZENTRA [Suspect]
     Indication: IMMUNODEFICIENCY COMMON VARIABLE
     Dosage: SEE IMAGE
     Route: 058
     Dates: start: 20110914
  4. HIZENTRA [Suspect]
  5. VERAMYST (FLUTICASONE) [Concomitant]
  6. XOPENEX [Concomitant]
  7. TYLENOL EX (PARACETAMOL) [Concomitant]

REACTIONS (8)
  - DIZZINESS [None]
  - MENINGITIS VIRAL [None]
  - PYREXIA [None]
  - CHILLS [None]
  - NAUSEA [None]
  - DISORIENTATION [None]
  - ASTHENIA [None]
  - HEADACHE [None]
